FAERS Safety Report 19292316 (Version 3)
Quarter: 2021Q3

REPORT INFORMATION
  Report Type: Spontaneous
  Country: AR (occurrence: AR)
  Receive Date: 20210524
  Receipt Date: 20210712
  Transmission Date: 20211014
  Serious: Yes (Other)
  Sender: FDA-Public Use
  Company Number: AR-AMGEN-ARGSP2021078522

PATIENT
  Age: 70 Year
  Sex: Female
  Weight: 33.79 kg

DRUGS (4)
  1. METOTREXATO [METHOTREXATE] [Concomitant]
     Active Substance: METHOTREXATE
     Dosage: 25 MG, WEEKLY
     Route: 058
     Dates: start: 2018
  2. ARCOXIA [Concomitant]
     Active Substance: ETORICOXIB
     Dosage: A TABLET FROM TIME TO TIME
  3. ENBREL [Suspect]
     Active Substance: ETANERCEPT
     Indication: RHEUMATOID ARTHRITIS
     Dosage: 50 MG, WEEKLY
     Route: 065
     Dates: start: 20110108
  4. DELTISONA [Concomitant]
     Active Substance: PREDNISONE
     Dosage: 4 MG (HALF TABLET), 1X/DAY

REACTIONS (4)
  - Arthralgia [Recovered/Resolved]
  - Dysstasia [Not Recovered/Not Resolved]
  - Pain [Recovered/Resolved]
  - Joint swelling [Recovered/Resolved]

NARRATIVE: CASE EVENT DATE: 20210121
